FAERS Safety Report 8119984-3 (Version None)
Quarter: 2012Q1

REPORT INFORMATION
  Report Type: 
  Country: None (occurrence: None)
  Receive Date: 20120206
  Receipt Date: 20120206
  Transmission Date: 20120608
  Serious: No
  Sender: FDA-Public Use
  Company Number: None

PATIENT
  Age: 77 Year
  Sex: Female
  Weight: 50.8029 kg

DRUGS (2)
  1. HYDROCODONE BITARTRATE AND CHLORPHENIRAMINE MALEATE POLISTIREX [Suspect]
     Indication: NASOPHARYNGITIS
     Dosage: 1 TEASPOONFUL EVERY 12 HRS MOUTH
     Route: 048
     Dates: start: 20111128, end: 20111206
  2. HYDROCODONE BITARTRATE AND CHLORPHENIRAMINE MALEATE POLISTIREX [Suspect]
     Indication: COUGH
     Dosage: 1 TEASPOONFUL EVERY 12 HRS MOUTH
     Route: 048
     Dates: start: 20111128, end: 20111206

REACTIONS (4)
  - PAIN [None]
  - INFLAMMATION [None]
  - BURNING SENSATION [None]
  - DRY MOUTH [None]
